FAERS Safety Report 5395833-1 (Version None)
Quarter: 2007Q3

REPORT INFORMATION
  Report Type: 
  Country: None (occurrence: None)
  Receive Date: 20070724
  Receipt Date: 20070713
  Transmission Date: 20080115
  Serious: Yes (Hospitalization)
  Sender: FDA-Public Use
  Company Number: GB-PFIZER INC-2007002055

PATIENT
  Sex: Male

DRUGS (6)
  1. SU-011,248 [Suspect]
     Indication: RENAL CELL CARCINOMA STAGE UNSPECIFIED
     Route: 048
  2. AMLODIPINE [Concomitant]
     Route: 048
  3. IMDUR [Concomitant]
     Route: 048
  4. ATENOLOL [Concomitant]
     Route: 048
  5. IRON SULFATETHIAMIN COMPOUND TAB [Concomitant]
     Route: 048
  6. OMEPRAZOLE [Concomitant]
     Route: 048

REACTIONS (1)
  - NEOPLASM [None]
